FAERS Safety Report 6163222-8 (Version None)
Quarter: 2009Q2

REPORT INFORMATION
  Report Type: 
  Country: None (occurrence: None)
  Receive Date: 20090422
  Receipt Date: 20090410
  Transmission Date: 20091009
  Serious: Yes (Other)
  Sender: FDA-Public Use
  Company Number: JP-JNJFOC-20090404070

PATIENT
  Age: 70 Year
  Sex: Female

DRUGS (2)
  1. REMICADE [Suspect]
     Dosage: 5TH INFUSION
     Route: 042
  2. REMICADE [Suspect]
     Indication: RHEUMATOID ARTHRITIS
     Dosage: 4 INFUSIONS ON UNSPECIFIED DATES
     Route: 042

REACTIONS (1)
  - ANGIOPATHY [None]
